FAERS Safety Report 7746285-5 (Version None)
Quarter: 2011Q3

REPORT INFORMATION
  Report Type: 
  Country: None (occurrence: None)
  Receive Date: 20110913
  Receipt Date: 20110908
  Transmission Date: 20111222
  Serious: Yes (Death, Life-Threatening, Other)
  Sender: FDA-Public Use
  Company Number: DK-BRISTOL-MYERS SQUIBB COMPANY-16041550

PATIENT
  Age: 61 Year
  Sex: Male
  Weight: 84 kg

DRUGS (8)
  1. RITUXIMAB [Suspect]
     Indication: LYMPHOMA
     Route: 042
     Dates: start: 20110308
  2. ETOPOSIDE [Suspect]
     Indication: LYMPHOMA
     Route: 042
     Dates: start: 20110412
  3. MESNA [Suspect]
     Indication: LYMPHOMA
     Route: 042
     Dates: start: 20110413
  4. DEXAMETHASONE [Suspect]
     Indication: LYMPHOMA
     Route: 048
     Dates: start: 20110308
  5. IFOSFAMIDE [Suspect]
     Indication: LYMPHOMA
     Dosage: FOR 5 DAYS
     Route: 042
     Dates: start: 20110412
  6. CISPLATIN [Suspect]
     Indication: LYMPHOMA
     Route: 042
     Dates: start: 20110308
  7. CYTARABINE [Suspect]
     Indication: LYMPHOMA
     Route: 042
     Dates: start: 20110309
  8. METHOTREXATE [Suspect]
     Indication: LYMPHOMA
     Dosage: FOR 2 WKS
     Route: 042
     Dates: start: 20110412

REACTIONS (4)
  - ATRIAL FIBRILLATION [None]
  - PNEUMONIA [None]
  - RENAL FAILURE [None]
  - SEPSIS [None]
